FAERS Safety Report 14998202 (Version 7)
Quarter: 2018Q3

REPORT INFORMATION
  Report Type: Report from Study
  Country: DE (occurrence: DE)
  Receive Date: 20180611
  Receipt Date: 20180806
  Transmission Date: 20181010
  Serious: Yes (Hospitalization)
  Sender: FDA-Public Use
  Company Number: PHHO2018DE006961

PATIENT
  Age: 64 Year
  Sex: Male
  Weight: 102 kg

DRUGS (3)
  1. AIN457 [Suspect]
     Active Substance: SECUKINUMAB
     Dosage: 2 Q2W
     Route: 058
     Dates: start: 20180514
  2. AIN457 [Suspect]
     Active Substance: SECUKINUMAB
     Dosage: 2 Q2W
     Route: 058
     Dates: start: 20180628
  3. AIN457 [Suspect]
     Active Substance: SECUKINUMAB
     Indication: PSORIATIC ARTHROPATHY
     Dosage: 300 MG, UNK
     Route: 058
     Dates: start: 20170831

REACTIONS (1)
  - Pericardial effusion [Not Recovered/Not Resolved]

NARRATIVE: CASE EVENT DATE: 20180531
